FAERS Safety Report 8028105-7 (Version None)
Quarter: 2012Q1

REPORT INFORMATION
  Report Type: 
  Country: None (occurrence: None)
  Receive Date: 20120106
  Receipt Date: 20111229
  Transmission Date: 20120608
  Serious: Yes (Hospitalization)
  Sender: FDA-Public Use
  Company Number: FR-AMGEN-FRASP2011069871

PATIENT
  Age: 58 Year
  Sex: Male
  Weight: 117 kg

DRUGS (4)
  1. METHOTREXATE SODIUM [Suspect]
     Indication: RHEUMATOID ARTHRITIS
     Dosage: 15 MG, WEEKLY
     Route: 048
     Dates: start: 20100501, end: 20111101
  2. PREDNISONE TAB [Concomitant]
     Dosage: 7.5 MG DAILY IN TWO INTAKES
     Route: 048
  3. ENBREL [Suspect]
     Indication: RHEUMATOID ARTHRITIS
     Dosage: 1 DF, WEEKLY
     Route: 058
     Dates: start: 20110501, end: 20111101
  4. SPECIAFOLDINE [Concomitant]
     Indication: RHEUMATOID ARTHRITIS
     Dosage: 3 DF PER WEEK
     Dates: start: 20100501

REACTIONS (1)
  - PANCREATITIS ACUTE [None]
